FAERS Safety Report 18942539 (Version 1)
Quarter: 2021Q1

REPORT INFORMATION
  Report Type: Spontaneous
  Country: US (occurrence: US)
  Receive Date: 20210225
  Receipt Date: 20210225
  Transmission Date: 20210420
  Serious: No
  Sender: FDA-Public Use
  Company Number: US-PERRIGO-20US010469

PATIENT
  Sex: Female
  Weight: 52.15 kg

DRUGS (2)
  1. NAPROXEN SODIUM. [Suspect]
     Active Substance: NAPROXEN SODIUM
     Dosage: 220 MG, EVERY 12 HOURS, PRN
     Route: 048
     Dates: start: 202007
  2. NAPROXEN SODIUM. [Suspect]
     Active Substance: NAPROXEN SODIUM
     Indication: BACK PAIN
     Dosage: 220 MG, EVERY 12 HOURS
     Route: 048
     Dates: start: 2018, end: 2018

REACTIONS (4)
  - Epistaxis [Recovered/Resolved]
  - Expired product administered [Unknown]
  - Drug ineffective [Unknown]
  - Incorrect product administration duration [Recovered/Resolved]

NARRATIVE: CASE EVENT DATE: 2018
